FAERS Safety Report 7699489-4 (Version None)
Quarter: 2011Q3

REPORT INFORMATION
  Report Type: 
  Country: None (occurrence: None)
  Receive Date: 20110820
  Receipt Date: 20110325
  Transmission Date: 20111222
  Serious: No
  Sender: FDA-Public Use
  Company Number: US-ALLERGAN-1104279US

PATIENT
  Age: 65 Year
  Sex: Female

DRUGS (2)
  1. SANCTURA XR [Suspect]
     Indication: INCONTINENCE
     Dosage: UNK
     Dates: start: 20110325
  2. NITROFURANTOIN [Suspect]
     Indication: CYSTITIS
     Dosage: UNK
     Dates: start: 20110325

REACTIONS (6)
  - EXPIRED DRUG ADMINISTERED [None]
  - DIARRHOEA [None]
  - HEADACHE [None]
  - ASTHENIA [None]
  - DIZZINESS [None]
  - NAUSEA [None]
